FAERS Safety Report 7595631-4 (Version None)
Quarter: 2011Q3

REPORT INFORMATION
  Report Type: 
  Country: None (occurrence: None)
  Receive Date: 20110707
  Receipt Date: 20110628
  Transmission Date: 20111222
  Serious: Yes (Hospitalization, Other)
  Sender: FDA-Public Use
  Company Number: US-ASTRAZENECA-2011SE27386

PATIENT
  Age: 19408 Day
  Sex: Female
  Weight: 88 kg

DRUGS (1)
  1. NEXIUM [Suspect]
     Route: 048

REACTIONS (3)
  - HYSTERECTOMY [None]
  - CERVICAL DYSPLASIA [None]
  - CERVIX CARCINOMA STAGE 0 [None]
